FAERS Safety Report 5729160-7 (Version None)
Quarter: 2008Q2

REPORT INFORMATION
  Report Type: 
  Country: None (occurrence: None)
  Receive Date: 20080506
  Receipt Date: 20080425
  Transmission Date: 20081010
  Serious: Yes (Other)
  Sender: FDA-Public Use
  Company Number: US-PFIZER INC-2008033437

PATIENT
  Sex: Female
  Weight: 64.545 kg

DRUGS (4)
  1. NITROSTAT [Suspect]
     Indication: HYPERTENSION
     Route: 048
  2. COZAAR [Concomitant]
  3. TOPROL-XL [Concomitant]
  4. XANAX [Concomitant]

REACTIONS (2)
  - BLOOD PRESSURE INADEQUATELY CONTROLLED [None]
  - OFF LABEL USE [None]
